FAERS Safety Report 18801683 (Version 2)
Quarter: 2021Q1

REPORT INFORMATION
  Report Type: Spontaneous
  Country: US (occurrence: US)
  Receive Date: 20210128
  Receipt Date: 20210224
  Transmission Date: 20210419
  Serious: No
  Sender: FDA-Public Use
  Company Number: US-INTRA-CELLULAR THERAPIES, INC.-2021ICT00051

PATIENT
  Age: 35 Year
  Sex: Male
  Weight: 67.12 kg

DRUGS (13)
  1. CAPLYTA [Suspect]
     Active Substance: LUMATEPERONE
     Indication: HALLUCINATION, AUDITORY
  2. CLOZARIL [Concomitant]
     Active Substance: CLOZAPINE
     Dosage: 200 MG
  3. THIAMINE. [Concomitant]
     Active Substance: THIAMINE
  4. MIRTAZAPINE. [Concomitant]
     Active Substance: MIRTAZAPINE
  5. VITAMIN D [Concomitant]
     Active Substance: VITAMIN D NOS
  6. CAPLYTA [Suspect]
     Active Substance: LUMATEPERONE
     Indication: PSYCHOTIC DISORDER
     Dosage: ^DOUBLED UP^; ^TWO A DAY FOR A COUPLE DAYS^
     Route: 048
     Dates: start: 202010, end: 202011
  7. B?COMPLEX 100 [Concomitant]
  8. MAGNESIUM [Concomitant]
     Active Substance: MAGNESIUM
  9. KRILL [Concomitant]
  10. REXULTI [Concomitant]
     Active Substance: BREXPIPRAZOLE
  11. PROBIOTIC [Concomitant]
     Active Substance: PROBIOTICS NOS
  12. CAPLYTA [Suspect]
     Active Substance: LUMATEPERONE
     Indication: SCHIZOPHRENIA
     Dosage: ^1 A DAY FOR THE FIRST DAY OR TWO^
     Route: 048
     Dates: start: 20201026, end: 202010
  13. ZINC. [Concomitant]
     Active Substance: ZINC

REACTIONS (2)
  - Drug ineffective [Recovered/Resolved]
  - Off label use [Recovered/Resolved]

NARRATIVE: CASE EVENT DATE: 20201026
